FAERS Safety Report 7552815-9 (Version None)
Quarter: 2011Q2

REPORT INFORMATION
  Report Type: 
  Country: None (occurrence: None)
  Receive Date: 20110616
  Receipt Date: 20110613
  Transmission Date: 20111010
  Serious: Yes (Other)
  Sender: FDA-Public Use
  Company Number: BR-PFIZER INC-2010150217

PATIENT
  Age: 23 Day
  Sex: Female
  Weight: 3.875 kg

DRUGS (4)
  1. CITALOR [Suspect]
     Indication: BLOOD CHOLESTEROL INCREASED
     Dosage: UNK
     Route: 050
     Dates: start: 20060601
  2. MATERNA [Suspect]
     Indication: VITAMIN SUPPLEMENTATION
     Dosage: 1 TABLET, 1X/DAY
     Route: 064
     Dates: start: 20101101
  3. FOLIC ACID [Concomitant]
     Indication: PROPHYLAXIS OF NEURAL TUBE DEFECT
     Dosage: 5 MG, 1X/DAY
     Dates: start: 20100701, end: 20101101
  4. CITALOR [Suspect]
     Dosage: 10 MG, 1X/DAY
     Route: 050
     Dates: start: 20100801

REACTIONS (3)
  - DRUG EXPOSURE DURING PREGNANCY [None]
  - FEEDING DISORDER NEONATAL [None]
  - SOMNOLENCE [None]
